FAERS Safety Report 25178504 (Version 1)
Quarter: 2025Q2

REPORT INFORMATION
  Report Type: Spontaneous
  Country: DE (occurrence: DE)
  Receive Date: 20250409
  Receipt Date: 20250409
  Transmission Date: 20250717
  Serious: Yes (Other)
  Sender: BAYER
  Company Number: DE-BAYER-2025A045868

PATIENT
  Age: 70 Year
  Sex: Male

DRUGS (14)
  1. ADEMPAS [Suspect]
     Active Substance: RIOCIGUAT
  2. WINREVAIR [Concomitant]
     Active Substance: SOTATERCEPT-CSRK
     Indication: Pulmonary arterial hypertension
     Dates: start: 20250313
  3. OPSUMIT [Concomitant]
     Active Substance: MACITENTAN
  4. ILOPROST [Concomitant]
     Active Substance: ILOPROST
  5. UPTRAVI [Concomitant]
     Active Substance: SELEXIPAG
  6. ASPIRIN [Concomitant]
     Active Substance: ASPIRIN
  7. ATORVASTATIN [Concomitant]
     Active Substance: ATORVASTATIN
  8. EZETIMIBE [Concomitant]
     Active Substance: EZETIMIBE
  9. DAPAGLIFLOZIN [Concomitant]
     Active Substance: DAPAGLIFLOZIN
  10. Kalinor [Concomitant]
  11. METOPROLOL [Concomitant]
     Active Substance: METOPROLOL
  12. PANTOPRAZOLE SODIUM [Concomitant]
     Active Substance: PANTOPRAZOLE SODIUM
  13. TORSEMIDE [Concomitant]
     Active Substance: TORSEMIDE
  14. TORSEMIDE [Concomitant]
     Active Substance: TORSEMIDE

REACTIONS (5)
  - Respiratory failure [None]
  - Acute myocardial infarction [None]
  - Cardiac disorder [None]
  - Ventricular extrasystoles [None]
  - Aortic valve replacement [None]
